FAERS Safety Report 23370455 (Version 1)
Quarter: 2024Q1

REPORT INFORMATION
  Report Type: Spontaneous
  Country: US (occurrence: None)
  Receive Date: 20240104
  Receipt Date: 20240104
  Transmission Date: 20240410
  Serious: Yes (Hospitalization)
  Sender: FDA-Public Use
  Company Number: None

PATIENT
  Age: 16 Year
  Sex: Male

DRUGS (4)
  1. CREON [Suspect]
     Active Substance: PANCRELIPASE AMYLASE\PANCRELIPASE LIPASE\PANCRELIPASE PROTEASE
     Indication: Cystic fibrosis
     Dosage: OTHER QUANTITY : 24000-76000 UNIT;?FREQUENCY : AS DIRECTED;?TAKE 3 CAPSULES BY MOUTH THREE TIMES DAI
     Route: 048
  2. CREON [Suspect]
     Active Substance: PANCRELIPASE AMYLASE\PANCRELIPASE LIPASE\PANCRELIPASE PROTEASE
     Dosage: FREQUENCY : AS DIRECTED;?
     Route: 048
  3. PEDIASUR LIQ VANILLA [Concomitant]
  4. RELIZORB MIS [Concomitant]

REACTIONS (2)
  - Lung disorder [None]
  - Nonspecific reaction [None]

NARRATIVE: CASE EVENT DATE: 20240102
